FAERS Safety Report 6146133-3 (Version None)
Quarter: 2009Q2

REPORT INFORMATION
  Report Type: 
  Country: None (occurrence: None)
  Receive Date: 20090407
  Receipt Date: 20090402
  Transmission Date: 20091009
  Serious: Yes (Other)
  Sender: FDA-Public Use
  Company Number: BR-NOVOPROD-284070

PATIENT
  Age: 77 Year
  Sex: Female

DRUGS (5)
  1. NOVOLIN N [Suspect]
     Indication: TYPE 1 DIABETES MELLITUS
     Dosage: 10 IU, QD
     Route: 058
  2. METFORMIN HCL [Concomitant]
     Indication: DIABETES MELLITUS
     Dosage: 850 MG, QD
     Route: 048
  3. LORAZEPAM [Concomitant]
     Indication: SEDATIVE THERAPY
  4. ACID ACETYLSALICYLIC [Concomitant]
     Indication: CARDIAC DISORDER
     Dosage: 200 MG, QD
  5. ISOSORBIDE [Concomitant]
     Indication: CARDIAC DISORDER
     Dosage: 20 MG, QD
     Route: 048

REACTIONS (1)
  - SYNCOPE [None]
